FAERS Safety Report 4563435-2 (Version None)
Quarter: 2005Q1

REPORT INFORMATION
  Report Type: 
  Country: None (occurrence: None)
  Receive Date: 20050128
  Receipt Date: 20040511
  Transmission Date: 20050727
  Serious: No
  Sender: FDA-Public Use
  Company Number: US-GLAXOSMITHKLINE-A0510401A

PATIENT
  Sex: Female

DRUGS (3)
  1. WELLBUTRIN [Suspect]
     Indication: DEPRESSION
     Dosage: 100MG TWICE PER DAY
     Route: 048
     Dates: start: 20040401
  2. EFFEXOR [Concomitant]
  3. BLOOD PRESSURE MEDICATION [Concomitant]

REACTIONS (3)
  - CRYING [None]
  - DISORIENTATION [None]
  - DIZZINESS [None]
